FAERS Safety Report 6484290-X (Version None)
Quarter: 2009Q4

REPORT INFORMATION
  Report Type: 
  Country: None (occurrence: None)
  Receive Date: 20091209
  Receipt Date: 20090526
  Transmission Date: 20100525
  Serious: No
  Sender: FDA-Public Use
  Company Number: US-AMGEN-KDL348557

PATIENT
  Sex: Male

DRUGS (1)
  1. ENBREL [Suspect]
     Indication: RHEUMATOID ARTHRITIS
     Route: 058
     Dates: start: 20031201

REACTIONS (6)
  - BACK INJURY [None]
  - FALL [None]
  - HEADACHE [None]
  - NECK PAIN [None]
  - POSTURE ABNORMAL [None]
  - RHEUMATOID ARTHRITIS [None]
